FAERS Safety Report 5014875-9 (Version None)
Quarter: 2006Q2

REPORT INFORMATION
  Report Type: 
  Country: None (occurrence: None)
  Receive Date: 20060414
  Receipt Date: 20060117
  Transmission Date: 20061013
  Serious: No
  Sender: FDA-Public Use
  Company Number: 2006SP000323

PATIENT
  Age: 60 Year
  Sex: Female
  Weight: 73.4827 kg

DRUGS (16)
  1. LUNESTA [Suspect]
     Indication: INSOMNIA
     Dosage: 3 MG;HS;ORAL
     Route: 048
     Dates: start: 20050801
  2. ATORVASTATIN CALCIUM [Concomitant]
  3. EZETIMIBE [Concomitant]
  4. LEVOTHROID [Concomitant]
  5. RANITIDINE [Concomitant]
  6. DIHYDROERGOTAMINE MESYLATE [Concomitant]
  7. TARTRATE [Concomitant]
  8. FROVATRIPTAN [Concomitant]
  9. CAFFEINE W/ERGOTAMINE [Concomitant]
  10. ACETAMINOPHEN W/ PROPOXYPHENE HCL [Concomitant]
  11. PROMETHAZINE [Concomitant]
  12. NASAREL [Concomitant]
  13. METHOCARBAMOL [Concomitant]
  14. ACETAMINOPHEN AND OXYCODONE HCL [Concomitant]
  15. METOCLOPRAMIDE [Concomitant]
  16. INDOMETHACIN [Concomitant]

REACTIONS (2)
  - ASTHENIA [None]
  - INSOMNIA [None]
